FAERS Safety Report 24290669 (Version 2)
Quarter: 2024Q3

REPORT INFORMATION
  Report Type: Spontaneous
  Country: US (occurrence: US)
  Receive Date: 20240906
  Receipt Date: 20240906
  Transmission Date: 20241017
  Serious: Yes (Death, Hospitalization, Other)
  Sender: ASTELLAS
  Company Number: US-ROCHE-10000070892

PATIENT
  Age: 58 Year
  Sex: Female

DRUGS (2)
  1. ERLOTINIB [Suspect]
     Active Substance: ERLOTINIB
     Indication: Pancreatic carcinoma
     Route: 065
  2. SORAFENIB [Suspect]
     Active Substance: SORAFENIB
     Indication: Pancreatic carcinoma
     Route: 065

REACTIONS (5)
  - Spinal compression fracture [Fatal]
  - Lung infiltration [Unknown]
  - Spinal fracture [Unknown]
  - Acute respiratory failure [Unknown]
  - Back pain [Unknown]

NARRATIVE: CASE EVENT DATE: 20100810
